FAERS Safety Report 9032642 (Version 1)
Quarter: 2013Q1

REPORT INFORMATION
  Report Type: Report from Study
  Country: FR (occurrence: FR)
  Receive Date: 20130125
  Receipt Date: 20130125
  Transmission Date: 20140127
  Serious: Yes (Hospitalization)
  Sender: FDA-Public Use
  Company Number: FR-CELGENEUS-056-21880-13011213

PATIENT
  Age: 58 Year
  Sex: Male

DRUGS (16)
  1. REVLIMID [Suspect]
     Indication: PLASMA CELL MYELOMA
     Dosage: 15 MILLIGRAM
     Route: 048
     Dates: start: 20101220, end: 20101230
  2. REVLIMID [Suspect]
     Dosage: 15 MILLIGRAM
     Route: 048
     Dates: start: 20110110, end: 20110120
  3. REVLIMID [Suspect]
     Dosage: 15 MILLIGRAM
     Route: 048
     Dates: start: 20110131
  4. REVLIMID [Suspect]
     Dosage: 15 MILLIGRAM
     Route: 048
     Dates: start: 20110624
  5. REVLIMID [Suspect]
     Route: 048
     Dates: start: 20110711, end: 20120901
  6. REVLIMID [Suspect]
     Dosage: 15 MILLIGRAM
     Route: 048
     Dates: end: 20120901
  7. VELCADE [Suspect]
     Indication: PLASMA CELL MYELOMA
     Dosage: 2.3 MILLIGRAM
     Route: 065
     Dates: start: 20101220, end: 20101230
  8. VELCADE [Suspect]
     Route: 065
     Dates: start: 20110110, end: 20110120
  9. VELCADE [Suspect]
     Route: 048
     Dates: start: 20110131
  10. VELCADE [Suspect]
     Route: 048
     Dates: start: 20110711, end: 20110728
  11. DEXAMETHASONE [Suspect]
     Indication: PLASMA CELL MYELOMA
     Route: 065
     Dates: start: 20101220, end: 20101230
  12. DEXAMETHASONE [Suspect]
     Route: 065
     Dates: start: 20110110, end: 20110120
  13. DEXAMETHASONE [Suspect]
     Route: 065
     Dates: start: 20110131
  14. DEXAMETHASONE [Suspect]
     Route: 065
     Dates: start: 20110711, end: 20110729
  15. TADENAN [Concomitant]
     Indication: BENIGN PROSTATIC HYPERPLASIA
     Route: 065
  16. MICARDIS [Concomitant]
     Indication: HYPERTENSION
     Route: 065

REACTIONS (3)
  - Gingival bleeding [Recovering/Resolving]
  - Hypercalcaemia [Recovered/Resolved]
  - Pancytopenia [Recovering/Resolving]
